FAERS Safety Report 5799145-3 (Version None)
Quarter: 2008Q3

REPORT INFORMATION
  Report Type: 
  Country: None (occurrence: None)
  Receive Date: 20080701
  Receipt Date: 20080617
  Transmission Date: 20090109
  Serious: Yes (Hospitalization)
  Sender: FDA-Public Use
  Company Number: 234293J08USA

PATIENT
  Age: 56 Year
  Sex: Female

DRUGS (3)
  1. REBIF [Suspect]
     Indication: MULTIPLE SCLEROSIS
     Dosage: 44 MCG, 3 IN 1 WEEKS,SUBCUTANEOUS
     Route: 058
     Dates: start: 20070726, end: 20080401
  2. NEURONTIN [Concomitant]
  3. BACLOFEN [Concomitant]

REACTIONS (3)
  - DRUG DOSE OMISSION [None]
  - PARAESTHESIA [None]
  - SYNCOPE VASOVAGAL [None]
